FAERS Safety Report 7541679-5 (Version None)
Quarter: 2011Q2

REPORT INFORMATION
  Report Type: 
  Country: None (occurrence: None)
  Receive Date: 20110613
  Receipt Date: 20110530
  Transmission Date: 20111010
  Serious: Yes (Other)
  Sender: FDA-Public Use
  Company Number: FR-RANBAXY-2011RR-45224

PATIENT
  Age: 30 Year
  Sex: Female

DRUGS (4)
  1. AZELASTINE [Suspect]
     Dosage: UNK
     Route: 045
     Dates: start: 20090801, end: 20100205
  2. RANITIDINE [Suspect]
     Dosage: 300 MG, UNK
     Route: 048
     Dates: start: 20100120, end: 20100205
  3. IBUPROFEN [Suspect]
     Dosage: UNK
     Route: 048
     Dates: start: 20091218, end: 20100205
  4. DESLORATADINE [Suspect]
     Dosage: 5 MG, UNK
     Route: 048
     Dates: start: 20090801, end: 20100205

REACTIONS (3)
  - INTRA-UTERINE DEATH [None]
  - ABORTION INDUCED [None]
  - DRUG EXPOSURE DURING PREGNANCY [None]
